FAERS Safety Report 6288954-2 (Version None)
Quarter: 2009Q3

REPORT INFORMATION
  Report Type: 
  Country: None (occurrence: None)
  Receive Date: 20090729
  Receipt Date: 20070517
  Transmission Date: 20100115
  Serious: Yes (Hospitalization, Other)
  Sender: FDA-Public Use
  Company Number: US-ASTRAZENECA-2006UW24943

PATIENT
  Age: 17059 Day
  Sex: Female
  Weight: 106.1 kg

DRUGS (19)
  1. SEROQUEL [Suspect]
     Indication: BIPOLAR DISORDER
     Dosage: 25-200 MG
     Route: 048
     Dates: start: 20040317
  2. SEROQUEL [Suspect]
     Indication: DEPRESSION
     Dosage: 25-200 MG
     Route: 048
     Dates: start: 20040317
  3. SEROQUEL [Suspect]
     Route: 048
  4. SEROQUEL [Suspect]
     Route: 048
  5. HALDOL [Concomitant]
     Dates: start: 20000801
  6. RISPERDAL [Concomitant]
     Dates: start: 20000101
  7. EFFEXOR [Concomitant]
     Dates: start: 20000101
  8. NEURONTIN [Concomitant]
     Dosage: 900-1800 MG
     Dates: start: 20020628
  9. METFORMIN [Concomitant]
     Dosage: 2000-2500 MG A DAY
     Dates: start: 20040503
  10. BUSPAR [Concomitant]
     Dosage: 30-60 MG
     Dates: start: 20060807
  11. GLYBURIDE [Concomitant]
     Dosage: 10 MG TWICE A DAY, 5 MG THREE IN MORNING AT TWO AT NIGHT (20-25 MG)
     Dates: start: 20050610
  12. ROBAXIN [Concomitant]
     Indication: PAIN
     Dates: start: 20040604
  13. DYAZIDE [Concomitant]
     Dosage: 37.5/25 ONCE A DAY
     Dates: start: 20050610
  14. EVISTA [Concomitant]
     Dates: start: 20031014
  15. ACTOS [Concomitant]
     Dates: start: 20050610, end: 20071219
  16. LASIX [Concomitant]
     Dosage: 40-80 MG, DAILY
     Dates: start: 20071017
  17. AMBIEN [Concomitant]
     Dates: start: 20060807
  18. SIMVASTATIN [Concomitant]
     Dates: start: 20071017
  19. LOVASTATIN [Concomitant]
     Dates: start: 20070829

REACTIONS (6)
  - DIABETES MELLITUS [None]
  - DIABETES MELLITUS INADEQUATE CONTROL [None]
  - DIABETIC NEUROPATHY [None]
  - PERIPHERAL VASCULAR DISORDER [None]
  - SUICIDAL IDEATION [None]
  - SUICIDE ATTEMPT [None]
